FAERS Safety Report 5181291-9 (Version None)
Quarter: 2006Q4

REPORT INFORMATION
  Report Type: 
  Country: None (occurrence: None)
  Receive Date: 20061220
  Receipt Date: 20051202
  Transmission Date: 20070319
  Serious: No
  Sender: FDA-Public Use
  Company Number: US-GLAXOSMITHKLINE-A0584415A

PATIENT
  Age: 77 Year
  Sex: Male

DRUGS (1)
  1. COMMIT [Suspect]
     Dates: start: 20051130, end: 20051201

REACTIONS (3)
  - DRUG INEFFECTIVE [None]
  - HICCUPS [None]
  - NICOTINE DEPENDENCE [None]
